FAERS Safety Report 8860251 (Version 2)
Quarter: 2013Q1

REPORT INFORMATION
  Report Type: Spontaneous
  Country: GB (occurrence: GB)
  Receive Date: 20121025
  Receipt Date: 20130123
  Transmission Date: 20140127
  Serious: Yes (Hospitalization, Other)
  Sender: FDA-Public Use
  Company Number: PHFR2012GB005538

PATIENT
  Age: 27 Year
  Sex: Male

DRUGS (3)
  1. CLOZARIL [Suspect]
     Indication: SCHIZOPHRENIA
     Dosage: UNK
     Dates: start: 20120927
  2. CLOZARIL [Suspect]
     Dosage: UNK
     Route: 048
     Dates: start: 20121001, end: 20121030
  3. VALPROATE [Concomitant]
     Indication: SCHIZOPHRENIA
     Dosage: 750 MG, QD
     Dates: start: 2009, end: 201212

REACTIONS (5)
  - Troponin increased [Recovered/Resolved]
  - Eosinophil count increased [Recovered/Resolved]
  - Differential white blood cell count abnormal [Unknown]
  - Neutrophil count increased [Unknown]
  - White blood cell count increased [Unknown]
